FAERS Safety Report 17904123 (Version 1)
Quarter: 2020Q2

REPORT INFORMATION
  Report Type: Spontaneous
  Country: US (occurrence: US)
  Receive Date: 20200617
  Receipt Date: 20200617
  Transmission Date: 20200714
  Serious: Yes (Other)
  Sender: FDA-Public Use
  Company Number: US-ROCHE-2618812

PATIENT

DRUGS (4)
  1. OXYCONTIN [Concomitant]
     Active Substance: OXYCODONE HYDROCHLORIDE
     Dosage: 500 PILLS A MONTH
     Route: 065
     Dates: start: 2008
  2. SOMA [Concomitant]
     Active Substance: CARISOPRODOL
     Route: 065
  3. VALIUM [Suspect]
     Active Substance: DIAZEPAM
     Indication: PRODUCT USED FOR UNKNOWN INDICATION
     Route: 065
     Dates: start: 20080101
  4. METHADONE [Concomitant]
     Active Substance: METHADONE HYDROCHLORIDE
     Dosage: 720 PILLS A MONTH
     Route: 065
     Dates: start: 2008

REACTIONS (7)
  - Post-traumatic stress disorder [Unknown]
  - Lung neoplasm malignant [Unknown]
  - Visual impairment [Unknown]
  - Internal injury [Unknown]
  - Multiple fractures [Unknown]
  - Limb injury [Unknown]
  - Gastric cancer [Unknown]
